FAERS Safety Report 6698366-5 (Version None)
Quarter: 2010Q2

REPORT INFORMATION
  Report Type: 
  Country: None (occurrence: None)
  Receive Date: 20100427
  Receipt Date: 20100419
  Transmission Date: 20101027
  Serious: Yes (Hospitalization)
  Sender: FDA-Public Use
  Company Number: US-SANOFI-AVENTIS-2010SA023417

PATIENT
  Sex: Female

DRUGS (8)
  1. LOVENOX [Suspect]
     Indication: THROMBOSIS IN DEVICE
     Route: 065
     Dates: start: 20100328
  2. INVESTIGATIONAL DRUG [Suspect]
     Route: 048
     Dates: start: 20100304, end: 20100401
  3. FLUCONAZOLE [Concomitant]
  4. FOLIC ACID [Concomitant]
  5. AMLODIPINE BESYLATE [Concomitant]
  6. PRILOSEC [Concomitant]
  7. TEMAZEPAM [Concomitant]
  8. VITAMIN B-12 [Concomitant]

REACTIONS (4)
  - ABDOMINAL DISTENSION [None]
  - ANAEMIA [None]
  - HAEMOGLOBIN DECREASED [None]
  - LETHARGY [None]
